FAERS Safety Report 4779066-5 (Version None)
Quarter: 2005Q3

REPORT INFORMATION
  Report Type: 
  Country: None (occurrence: None)
  Receive Date: 20050923
  Receipt Date: 20050914
  Transmission Date: 20060218
  Serious: Yes (Other)
  Sender: FDA-Public Use
  Company Number: UKP05000319

PATIENT
  Age: 58 Year
  Sex: Female
  Weight: 68.8 kg

DRUGS (7)
  1. ACTONEL [Suspect]
     Indication: PROPHYLAXIS
     Dosage: 35 MG ORAL
     Route: 048
  2. FOSAMAX [Suspect]
     Indication: PROPHYLAXIS
     Dosage: 70 MG ORAL
     Route: 048
  3. PREDNISOLONE [Concomitant]
  4. PETHIDINE [Concomitant]
  5. PENTAZOCINE LACTATE [Concomitant]
  6. ADCAL-03 (COLECALCIFEROL, CALCIUM CARBONATE) [Concomitant]
  7. CO-AMILOFUSE (AMILORIDE HYDROCHLORIDE, FUROSEMIDE) [Concomitant]

REACTIONS (1)
  - WHEEZING [None]
